FAERS Safety Report 6723286-7 (Version None)
Quarter: 2010Q2

REPORT INFORMATION
  Report Type: 
  Country: None (occurrence: None)
  Receive Date: 20100512
  Receipt Date: 20100512
  Transmission Date: 20101027
  Serious: No
  Sender: FDA-Public Use
  Company Number: None

PATIENT
  Age: 39 Year
  Sex: Male

DRUGS (1)
  1. OPTIRAY 350 [Suspect]
     Indication: ABDOMEN SCAN
     Dosage: 100 ML X1 1
     Dates: start: 20100506

REACTIONS (2)
  - POST PROCEDURAL COMPLICATION [None]
  - URTICARIA [None]
